FAERS Safety Report 17820681 (Version 1)
Quarter: 2020Q2

REPORT INFORMATION
  Report Type: Report from Study
  Country: CA (occurrence: CA)
  Receive Date: 20200525
  Receipt Date: 20200525
  Transmission Date: 20200714
  Serious: Yes (Hospitalization, Other)
  Sender: FDA-Public Use
  Company Number: CA-PFIZER INC-2020202979

PATIENT
  Age: 75 Year
  Sex: Male

DRUGS (13)
  1. PREDNISONE. [Suspect]
     Active Substance: PREDNISONE
     Indication: ASTHMA
  2. NUCALA [Suspect]
     Active Substance: MEPOLIZUMAB
     Indication: ASTHMA
     Dosage: 100 MG
     Route: 042
  3. NUCALA [Suspect]
     Active Substance: MEPOLIZUMAB
     Dosage: 100 MG
     Route: 042
  4. UMECLIDINIUM BROMIDE [Suspect]
     Active Substance: UMECLIDINIUM BROMIDE
     Dosage: 1.0 DOSAGE FORMS, 1 EVERY 1 DAYS
  5. GLIPIZIDE. [Suspect]
     Active Substance: GLIPIZIDE
  6. SYMBICORT [Suspect]
     Active Substance: BUDESONIDE\FORMOTEROL FUMARATE DIHYDRATE
     Dosage: 2 DOSAGE FORMS, 2 EVERY 1 DAYS
  7. ATROVENT [Suspect]
     Active Substance: IPRATROPIUM BROMIDE
  8. SALBUTAMOL SULFATE [Suspect]
     Active Substance: ALBUTEROL SULFATE
     Route: 065
  9. BREO ELLIPTA [Suspect]
     Active Substance: FLUTICASONE FUROATE\VILANTEROL TRIFENATATE
     Dosage: 1 DF, 1X/DAY
  10. BISOPROLOL [Suspect]
     Active Substance: BISOPROLOL
  11. LIPITOR [Suspect]
     Active Substance: ATORVASTATIN CALCIUM
     Route: 065
  12. METFORMIN [Suspect]
     Active Substance: METFORMIN HYDROCHLORIDE
  13. ASPIRIN [ACETYLSALICYLIC ACID] [Suspect]
     Active Substance: ASPIRIN

REACTIONS (19)
  - Blood count abnormal [Unknown]
  - Obstructive airways disorder [Unknown]
  - Asthma [Unknown]
  - Forced expiratory volume decreased [Unknown]
  - Respiration abnormal [Unknown]
  - Vital capacity decreased [Unknown]
  - Musculoskeletal pain [Unknown]
  - Wheezing [Unknown]
  - Blood iron decreased [Unknown]
  - Chest pain [Unknown]
  - Thrombosis [Unknown]
  - Therapeutic product effect incomplete [Unknown]
  - Malaise [Unknown]
  - Cough [Unknown]
  - Eosinophil count increased [Unknown]
  - Expiratory reserve volume decreased [Unknown]
  - Myocardial infarction [Unknown]
  - Heart rate decreased [Unknown]
  - Inspiratory capacity decreased [Unknown]
